FAERS Safety Report 19961509 (Version 1)
Quarter: 2021Q4

REPORT INFORMATION
  Report Type: Spontaneous
  Country: US (occurrence: US)
  Receive Date: 20211017
  Receipt Date: 20211017
  Transmission Date: 20220303
  Serious: Yes (Hospitalization, Other)
  Sender: FDA-Public Use
  Company Number: US-SA-2021SA335725

PATIENT
  Age: 16 Year
  Sex: Female

DRUGS (7)
  1. FLUDARABINE PHOSPHATE [Suspect]
     Active Substance: FLUDARABINE PHOSPHATE
     Indication: Bone marrow conditioning regimen
     Dosage: UNK
  2. ALEMTUZUMAB [Suspect]
     Active Substance: ALEMTUZUMAB
     Indication: Bone marrow conditioning regimen
     Dosage: UNK
  3. CYCLOPHOSPHAMIDE [Suspect]
     Active Substance: CYCLOPHOSPHAMIDE
     Indication: Bone marrow conditioning regimen
     Dosage: UNK
  4. TACROLIMUS [Suspect]
     Active Substance: TACROLIMUS
     Indication: Prophylaxis against graft versus host disease
     Dosage: UNK
  5. VORICONAZOLE [Concomitant]
     Active Substance: VORICONAZOLE
     Indication: Antifungal treatment
     Dosage: UNK
  6. ACYCLOVIR [Concomitant]
     Active Substance: ACYCLOVIR
     Indication: Antiviral treatment
     Dosage: UNK
  7. SULFAMETHOXAZOLE\TRIMETHOPRIM [Concomitant]
     Active Substance: SULFAMETHOXAZOLE\TRIMETHOPRIM
     Indication: Antibiotic therapy
     Dosage: UNK

REACTIONS (24)
  - Acute kidney injury [Unknown]
  - Blood creatinine increased [Unknown]
  - Lactic acidosis [Unknown]
  - Multiple organ dysfunction syndrome [Unknown]
  - Acute respiratory distress syndrome [Recovering/Resolving]
  - Tachypnoea [Recovering/Resolving]
  - Hypoxia [Recovering/Resolving]
  - Pleural effusion [Recovering/Resolving]
  - Hypercapnia [Recovering/Resolving]
  - Rales [Recovering/Resolving]
  - Adenovirus infection [Recovering/Resolving]
  - Pyrexia [Recovering/Resolving]
  - Cough [Recovering/Resolving]
  - Rash maculo-papular [Recovering/Resolving]
  - Diarrhoea haemorrhagic [Recovering/Resolving]
  - Abdominal tenderness [Recovering/Resolving]
  - Rhinorrhoea [Recovering/Resolving]
  - Septic shock [Unknown]
  - Hypotension [Unknown]
  - Tachycardia [Unknown]
  - Liver injury [Unknown]
  - Transaminases increased [Unknown]
  - Off label use [Unknown]
  - Off label use [Unknown]
